FAERS Safety Report 25377183 (Version 1)
Quarter: 2025Q2

REPORT INFORMATION
  Report Type: Spontaneous
  Country: HR (occurrence: HR)
  Receive Date: 20250530
  Receipt Date: 20250530
  Transmission Date: 20250717
  Serious: Yes (Other)
  Sender: AUROBINDO
  Company Number: HR-AUROBINDO-AUR-APL-2025-027686

PATIENT
  Age: 5 Year
  Sex: Male

DRUGS (18)
  1. MELPHALAN [Suspect]
     Active Substance: MELPHALAN
     Indication: Retinoblastoma
     Dates: start: 202203
  2. MELPHALAN [Suspect]
     Active Substance: MELPHALAN
     Route: 013
     Dates: start: 202204
  3. MELPHALAN [Suspect]
     Active Substance: MELPHALAN
     Route: 013
     Dates: start: 202205
  4. MELPHALAN [Suspect]
     Active Substance: MELPHALAN
     Route: 065
     Dates: start: 202206
  5. MELPHALAN [Suspect]
     Active Substance: MELPHALAN
     Route: 065
     Dates: start: 202208
  6. MELPHALAN [Suspect]
     Active Substance: MELPHALAN
     Route: 065
     Dates: start: 202209
  7. MELPHALAN [Suspect]
     Active Substance: MELPHALAN
     Route: 065
     Dates: start: 202210
  8. MELPHALAN [Suspect]
     Active Substance: MELPHALAN
     Route: 065
     Dates: start: 202211
  9. MELPHALAN [Suspect]
     Active Substance: MELPHALAN
     Route: 065
     Dates: start: 202302
  10. MELPHALAN [Suspect]
     Active Substance: MELPHALAN
     Route: 065
     Dates: start: 202303
  11. ETOPOSIDE [Suspect]
     Active Substance: ETOPOSIDE
     Indication: Retinoblastoma
     Route: 065
  12. CARBOPLATIN [Suspect]
     Active Substance: CARBOPLATIN
     Indication: Retinoblastoma
     Route: 065
  13. TOPOTECAN [Suspect]
     Active Substance: TOPOTECAN HYDROCHLORIDE
     Indication: Retinoblastoma
     Route: 065
     Dates: start: 202209
  14. VANCOMYCIN [Concomitant]
     Active Substance: VANCOMYCIN
     Indication: Product used for unknown indication
     Route: 065
  15. CEFTRIAXONE [Concomitant]
     Active Substance: CEFTRIAXONE
     Indication: Product used for unknown indication
     Route: 065
  16. AZITHROMYCIN [Concomitant]
     Active Substance: AZITHROMYCIN
     Indication: Product used for unknown indication
     Route: 065
  17. RIFAMPIN [Concomitant]
     Active Substance: RIFAMPIN
     Indication: Product used for unknown indication
     Route: 065
  18. MOXIFLOXACIN [Concomitant]
     Active Substance: MOXIFLOXACIN
     Indication: Product used for unknown indication
     Route: 065

REACTIONS (4)
  - Symblepharon [Unknown]
  - Device failure [Unknown]
  - Cyst [Unknown]
  - Drug ineffective [Unknown]
